FAERS Safety Report 7597103-X (Version None)
Quarter: 2011Q3

REPORT INFORMATION
  Report Type: 
  Country: None (occurrence: None)
  Receive Date: 20110708
  Receipt Date: 20110628
  Transmission Date: 20111222
  Serious: Yes (Other)
  Sender: FDA-Public Use
  Company Number: CA-JNJFOC-20110613093

PATIENT
  Sex: Female
  Weight: 94 kg

DRUGS (9)
  1. SYNTHROID [Concomitant]
  2. ZOLEDRONIC ACID [Concomitant]
  3. LIPITOR [Concomitant]
  4. FOLIC ACID [Concomitant]
  5. VITAMIN D [Concomitant]
  6. CALCIUM CARBONATE [Concomitant]
  7. REMICADE [Suspect]
     Indication: PSORIATIC ARTHROPATHY
     Route: 042
     Dates: start: 20081201
  8. METHOTREXATE [Concomitant]
  9. ASCORBIC ACID [Concomitant]

REACTIONS (3)
  - EPISTAXIS [None]
  - INFUSION RELATED REACTION [None]
  - HYPERSENSITIVITY [None]
